FAERS Safety Report 12662365 (Version 1)
Quarter: 2016Q3

REPORT INFORMATION
  Report Type: Spontaneous
  Country: US (occurrence: US)
  Receive Date: 20160817
  Receipt Date: 20160817
  Transmission Date: 20161109
  Serious: No
  Sender: FDA-Public Use
  Company Number: US-ASTRAZENECA-2016SE85947

PATIENT
  Age: 681 Month
  Sex: Female
  Weight: 64.9 kg

DRUGS (4)
  1. TAMOXIFEN [Suspect]
     Active Substance: TAMOXIFEN
     Dosage: UNKNOWN
     Route: 048
  2. ASPIRIN. [Concomitant]
     Active Substance: ASPIRIN
     Indication: HYPERTENSION
     Route: 048
  3. ANASTRAZOLE [Suspect]
     Active Substance: ANASTROZOLE
     Indication: BREAST CANCER
     Route: 048
     Dates: start: 2013
  4. METOPROLOL TARTRATE. [Suspect]
     Active Substance: METOPROLOL TARTRATE
     Indication: HYPERTENSION
     Route: 048

REACTIONS (3)
  - Hypertension [Unknown]
  - Syncope [Unknown]
  - Electrocardiogram T wave inversion [Unknown]

NARRATIVE: CASE EVENT DATE: 201403
